FAERS Safety Report 24642406 (Version 1)
Quarter: 2024Q4

REPORT INFORMATION
  Report Type: Spontaneous
  Country: US (occurrence: None)
  Receive Date: 20241120
  Receipt Date: 20241120
  Transmission Date: 20250115
  Serious: Yes (Hospitalization)
  Sender: Public
  Company Number: None

PATIENT
  Sex: Male

DRUGS (4)
  1. HUMIRA [Suspect]
     Active Substance: ADALIMUMAB
     Indication: Crohn^s disease
     Dosage: FREQUENCY : WEEKLY;?
     Route: 058
     Dates: start: 201610
  2. HUMIRA [Suspect]
     Active Substance: ADALIMUMAB
     Indication: Intestinal obstruction
  3. PREDNISONE [Concomitant]
     Active Substance: PREDNISONE
  4. SAPHNALO [Concomitant]

REACTIONS (2)
  - Pain [None]
  - Obstruction [None]
